FAERS Safety Report 23261141 (Version 2)
Quarter: 2024Q1

REPORT INFORMATION
  Report Type: Spontaneous
  Country: KR (occurrence: KR)
  Receive Date: 20231205
  Receipt Date: 20240119
  Transmission Date: 20240410
  Serious: Yes (Other)
  Sender: FDA-Public Use
  Company Number: KR-VALIDUS PHARMACEUTICALS LLC-KR-VDP-2023-018104

PATIENT

DRUGS (2)
  1. LASIX [Suspect]
     Active Substance: FUROSEMIDE
     Indication: Urine output decreased
     Dosage: 0.5 DF, QD
     Route: 065
     Dates: start: 20201231, end: 20210101
  2. LASIX [Suspect]
     Active Substance: FUROSEMIDE
     Dosage: 1 MG
     Route: 065
     Dates: start: 20210102, end: 20210103

REACTIONS (2)
  - Hypokalaemia [Recovered/Resolved]
  - Hypophosphataemia [Recovered/Resolved]

NARRATIVE: CASE EVENT DATE: 20210102
